FAERS Safety Report 9217959 (Version 2)
Quarter: 2013Q2

REPORT INFORMATION
  Report Type: Report from Study
  Country: BR (occurrence: BR)
  Receive Date: 20130408
  Receipt Date: 20130509
  Transmission Date: 20140414
  Serious: Yes (Other)
  Sender: FDA-Public Use
  Company Number: PHHY2013BR033536

PATIENT
  Sex: Female
  Weight: 65 kg

DRUGS (6)
  1. ACLASTA [Suspect]
     Indication: OSTEOPOROSIS
     Dosage: 5 MG, UNK
     Route: 042
  2. CONDROFLEX [Concomitant]
     Dosage: UNK
  3. PANTOPRAZOLE [Concomitant]
     Dosage: UNK
  4. ADDERA D3 [Concomitant]
     Dosage: UNK
  5. CALCIUM + D3 [Concomitant]
     Dosage: UNK
  6. MULTI-VIT [Concomitant]
     Dosage: 35 DRP, EVERY 8 DAYS

REACTIONS (3)
  - Nephrolithiasis [Not Recovered/Not Resolved]
  - Headache [Recovered/Resolved]
  - Abdominal pain upper [Unknown]
